FAERS Safety Report 11435315 (Version 2)
Quarter: 2015Q3

REPORT INFORMATION
  Report Type: Report from Study
  Country: CZ (occurrence: CZ)
  Receive Date: 20150831
  Receipt Date: 20150910
  Transmission Date: 20151125
  Serious: Yes (Death)
  Sender: FDA-Public Use
  Company Number: CZ-ABBVIE-15P-217-1453058-00

PATIENT
  Sex: Male
  Weight: 61.9 kg

DRUGS (1)
  1. DUODOPA [Suspect]
     Active Substance: CARBIDOPA\LEVODOPA
     Indication: PRODUCT USED FOR UNKNOWN INDICATION
     Dosage: MD 10.5 ML; CD 4.8 ML;ED 1.5 ML
     Route: 050

REACTIONS (4)
  - Sepsis [Fatal]
  - Malnutrition [Unknown]
  - Pneumonia [Fatal]
  - Abscess limb [Unknown]

NARRATIVE: CASE EVENT DATE: 20150805
